FAERS Safety Report 19170198 (Version 1)
Quarter: 2021Q2

REPORT INFORMATION
  Report Type: Spontaneous
  Country: US (occurrence: US)
  Receive Date: 20210422
  Receipt Date: 20210422
  Transmission Date: 20210717
  Serious: No
  Sender: FDA-Public Use
  Company Number: US-PFIZER INC-2021345204

PATIENT
  Age: 30 Year
  Sex: Male

DRUGS (1)
  1. XELJANZ XR [Suspect]
     Active Substance: TOFACITINIB CITRATE
     Dosage: 11 MG
     Dates: start: 20180101

REACTIONS (3)
  - Gait disturbance [Unknown]
  - Pain [Recovering/Resolving]
  - Musculoskeletal stiffness [Unknown]
